FAERS Safety Report 8078673-4 (Version None)
Quarter: 2012Q1

REPORT INFORMATION
  Report Type: 
  Country: None (occurrence: None)
  Receive Date: 20120124
  Receipt Date: 20110728
  Transmission Date: 20120608
  Serious: Yes (Death)
  Sender: FDA-Public Use
  Company Number: TH-023399

PATIENT
  Age: 57 Year
  Sex: Male

DRUGS (1)
  1. (CHLORAMBUCIL) [Suspect]
     Indication: CHRONIC LYMPHOCYTIC LEUKAEMIA
     Dosage: TABLET 35 MG EVERY TWO WEEKS ORAL
     Route: 048
     Dates: start: 20101213

REACTIONS (11)
  - WHITE BLOOD CELL COUNT INCREASED [None]
  - HAEMORRHAGE INTRACRANIAL [None]
  - CEREBRAL THROMBOSIS [None]
  - SOMNOLENCE [None]
  - LUNG NEOPLASM [None]
  - BLOOD SODIUM DECREASED [None]
  - HAEMOGLOBIN DECREASED [None]
  - PROTHROMBIN TIME SHORTENED [None]
  - PLATELET COUNT DECREASED [None]
  - BLOOD GLUCOSE INCREASED [None]
  - GENERAL PHYSICAL HEALTH DETERIORATION [None]
